FAERS Safety Report 7203008-6 (Version None)
Quarter: 2010Q4

REPORT INFORMATION
  Report Type: 
  Country: None (occurrence: None)
  Receive Date: 20101229
  Receipt Date: 20101223
  Transmission Date: 20110411
  Serious: Yes (Hospitalization)
  Sender: FDA-Public Use
  Company Number: NL-ABBOTT-10P-114-0687769-00

PATIENT
  Sex: Female
  Weight: 75 kg

DRUGS (1)
  1. LUCRIN DEPOT 11.25 MG [Suspect]
     Indication: LEIOMYOMA
     Route: 058
     Dates: start: 20091002

REACTIONS (7)
  - CONSTIPATION [None]
  - DIARRHOEA [None]
  - FACE OEDEMA [None]
  - FOOD POISONING [None]
  - GASTROENTERITIS [None]
  - OEDEMA PERIPHERAL [None]
  - VOMITING [None]
